FAERS Safety Report 9766466 (Version 1)
Quarter: 2013Q4

REPORT INFORMATION
  Report Type: Spontaneous
  Country: US (occurrence: US)
  Receive Date: 20131217
  Receipt Date: 20131217
  Transmission Date: 20140711
  Serious: No
  Sender: FDA-Public Use
  Company Number: US-BIOGENIDEC-2013BI117966

PATIENT
  Sex: Female

DRUGS (15)
  1. TECFIDERA [Suspect]
     Indication: MULTIPLE SCLEROSIS
     Route: 048
     Dates: start: 201305
  2. STRATTERA [Concomitant]
  3. HUMALOG [Concomitant]
  4. LYRICA [Concomitant]
  5. TRICOR [Concomitant]
  6. LANTUS [Concomitant]
  7. TRAMADOL HCL [Concomitant]
  8. DIAZEPAM [Concomitant]
  9. HYDROCODON-ACETAMINOPHEN [Concomitant]
  10. VITAMIN D [Concomitant]
  11. MIRAPEX [Concomitant]
  12. METOPROLOL SUCC ER [Concomitant]
  13. ASPIRIN [Concomitant]
     Route: 048
  14. PLAVIX [Concomitant]
  15. CYMBALTA [Concomitant]

REACTIONS (1)
  - Depression [Unknown]
